FAERS Safety Report 17794015 (Version 1)
Quarter: 2020Q2

REPORT INFORMATION
  Report Type: Report from Study
  Country: ES (occurrence: ES)
  Receive Date: 20200516
  Receipt Date: 20200516
  Transmission Date: 20200714
  Serious: Yes (Hospitalization)
  Sender: FDA-Public Use
  Company Number: ES-TEVA-2020-ES-1234796

PATIENT
  Age: 71 Year
  Sex: Male

DRUGS (6)
  1. PREDNISONA (886A) [Interacting]
     Active Substance: PREDNISONE
     Dosage: 37.5 MG
     Route: 048
     Dates: start: 201705
  2. ABACAVIR (1111A) [Concomitant]
     Indication: HIV INFECTION
     Dosage: 600 MG
     Route: 048
     Dates: start: 20170307
  3. ASPIRINA 500 MG COMPRIMIDOS , 20 COMPRIMIDOS [Interacting]
     Active Substance: ASPIRIN
     Indication: INTERMITTENT CLAUDICATION
     Dosage: 150 MG
     Route: 048
     Dates: start: 200907
  4. OMEPRAZOL (2141A) [Concomitant]
     Active Substance: OMEPRAZOLE
     Indication: PROPHYLAXIS
     Dosage: 20 MG
     Route: 048
  5. ROSUVASTATINA (8215A) [Suspect]
     Active Substance: ROSUVASTATIN
     Indication: DYSLIPIDAEMIA
     Dosage: 20 MG
     Route: 048
  6. EFAVIRENZ (1107A) [Concomitant]
     Indication: HIV INFECTION
     Dosage: 600 MG
     Route: 048
     Dates: start: 20170307

REACTIONS (2)
  - Drug interaction [Unknown]
  - Upper gastrointestinal haemorrhage [Recovered/Resolved]

NARRATIVE: CASE EVENT DATE: 20170709
